FAERS Safety Report 10380436 (Version 1)
Quarter: 2014Q3

REPORT INFORMATION
  Report Type: Spontaneous
  Country: None (occurrence: CA)
  Receive Date: 20140813
  Receipt Date: 20140813
  Transmission Date: 20150326
  Serious: Yes (Other)
  Sender: FDA-Public Use
  Company Number: CA-ACCORD-025288

PATIENT
  Age: 60 Year
  Sex: Female

DRUGS (4)
  1. CISPLATIN. [Suspect]
     Active Substance: CISPLATIN
     Indication: RECTOSIGMOID CANCER
     Dosage: RECEIVED ON DAY 1.
     Route: 042
  2. FOLINIC ACID [Suspect]
     Active Substance: LEUCOVORIN
     Indication: RECTOSIGMOID CANCER
     Dosage: FOLFOX CHEMOTHERAPY. RECEIVED ON DAYS 1 AND 2.
     Route: 042
  3. FLUOROURACIL. [Suspect]
     Active Substance: FLUOROURACIL
     Indication: RECTOSIGMOID CANCER
     Dosage: FOLFOX CHEMOTHERAPY. RECEIVED ON DAYS 1 AND 2.
     Route: 042
  4. OXALIPLATIN. [Suspect]
     Active Substance: OXALIPLATIN
     Indication: RECTOSIGMOID CANCER
     Dosage: FOLFOX CHEMOTHERAPY. RECEIVED ON DAY 1.

REACTIONS (2)
  - Aortic thrombosis [Recovering/Resolving]
  - Off label use [Unknown]
